FAERS Safety Report 5305009-1 (Version None)
Quarter: 2007Q2

REPORT INFORMATION
  Report Type: 
  Country: None (occurrence: None)
  Receive Date: 20070416
  Receipt Date: 20070404
  Transmission Date: 20071010
  Serious: Yes (Other)
  Sender: FDA-Public Use
  Company Number: GXKR2007US03198

PATIENT
  Age: 81 Year
  Sex: Male

DRUGS (1)
  1. AMIODARONE HCL [Suspect]
     Indication: ATRIAL FIBRILLATION

REACTIONS (10)
  - BONE MARROW DISORDER [None]
  - GRANULOMA [None]
  - HEPATIC CIRRHOSIS [None]
  - HEPATOMEGALY [None]
  - HYPERTHYROIDISM [None]
  - LEUKOPENIA [None]
  - NEUTROPHIL PELGER-HUET ANOMALY PRESENT [None]
  - SPLEEN PALPABLE [None]
  - SPLENOMEGALY [None]
  - THROMBOCYTOPENIA [None]
